FAERS Safety Report 9692857 (Version 1)
Quarter: 2013Q4

REPORT INFORMATION
  Report Type: Spontaneous
  Country: US (occurrence: US)
  Receive Date: 20131118
  Receipt Date: 20131118
  Transmission Date: 20140711
  Serious: Yes (Hospitalization, Other)
  Sender: FDA-Public Use
  Company Number: US-BAYER-2013-139816

PATIENT
  Sex: Female
  Weight: 53.52 kg

DRUGS (6)
  1. EYLEA [Suspect]
     Indication: MACULAR DEGENERATION
     Dosage: 3 INJECTIONS OF EYLEA, THE LAST INJECTION PRIOR TO THE EVENT WAS ADMINISTERED 4-5 MONTHS AGO
     Dates: start: 2012
  2. PLAVIX [Suspect]
     Dosage: UNK
     Dates: start: 201304
  3. BAYER ASPIRIN REGIMEN ADULT LOW STRENGTH [Suspect]
     Dosage: 81 MG, UNK
     Dates: start: 201304
  4. BENICAR [Concomitant]
     Dosage: UNK
  5. VITAMIN D [Concomitant]
  6. CRESTOR [Concomitant]
     Dosage: 5 MG,3 IN 1 D

REACTIONS (2)
  - Gastrointestinal haemorrhage [Recovered/Resolved]
  - Retinal haemorrhage [None]
